FAERS Safety Report 24826094 (Version 2)
Quarter: 2025Q1

REPORT INFORMATION
  Report Type: Spontaneous
  Country: ID (occurrence: ID)
  Receive Date: 20250109
  Receipt Date: 20250110
  Transmission Date: 20250409
  Serious: Yes (Other)
  Sender: PFIZER
  Company Number: ID-MLMSERVICE-20241226-PI325059-00165-2

PATIENT
  Age: 45 Year
  Sex: Male

DRUGS (6)
  1. GEMCITABINE HYDROCHLORIDE [Suspect]
     Active Substance: GEMCITABINE HYDROCHLORIDE
     Indication: Gallbladder adenocarcinoma
     Dosage: 1200 MG, 1X/DAY (6 CYCLES Q28DAYS W/ DIVIDED DOSES Q14DAYS; 1200MG CONSUMED ON DAY1 + DAY8)
  2. GEMCITABINE HYDROCHLORIDE [Suspect]
     Active Substance: GEMCITABINE HYDROCHLORIDE
     Indication: Metastases to liver
  3. CAPECITABINE [Concomitant]
     Active Substance: CAPECITABINE
     Indication: Gallbladder adenocarcinoma
     Dosage: 1000 MG, 2X/DAY (6 CYCLES EVERY 28 DAYS (W/ DIVIDED DOSES EVERY 14 DAYS)) FOR 7 DAYS
  4. CAPECITABINE [Concomitant]
     Active Substance: CAPECITABINE
     Indication: Metastases to liver
  5. AMLODIPINE [Concomitant]
     Active Substance: AMLODIPINE BESYLATE
     Indication: Hypertension
     Dosage: 10 MG, 1X/DAY
  6. ATORVASTATIN [Concomitant]
     Active Substance: ATORVASTATIN
     Indication: Hypertension
     Dosage: 20 MG, 1X/DAY (EVERY NIGHT)

REACTIONS (2)
  - Deep vein thrombosis [Recovering/Resolving]
  - Off label use [Unknown]
